FAERS Safety Report 6456023-4 (Version None)
Quarter: 2009Q4

REPORT INFORMATION
  Report Type: 
  Country: None (occurrence: None)
  Receive Date: 20091125
  Receipt Date: 20091116
  Transmission Date: 20100525
  Serious: Yes (Other)
  Sender: FDA-Public Use
  Company Number: US-JNJFOC-20091105111

PATIENT
  Sex: Female
  Weight: 57.61 kg

DRUGS (4)
  1. SPORANOX [Suspect]
  2. SPORANOX [Suspect]
     Indication: HISTOPLASMOSIS
  3. SPIRIVA [Concomitant]
     Indication: CHRONIC OBSTRUCTIVE PULMONARY DISEASE
  4. PLAVIX [Concomitant]
     Indication: THROMBOSIS

REACTIONS (3)
  - ASPERGILLOSIS [None]
  - HISTOPLASMOSIS [None]
  - LUNG DISORDER [None]
